FAERS Safety Report 5081900-9 (Version None)
Quarter: 2006Q3

REPORT INFORMATION
  Report Type: 
  Country: None (occurrence: None)
  Receive Date: 20060816
  Receipt Date: 20060725
  Transmission Date: 20061208
  Serious: Yes (Hospitalization)
  Sender: FDA-Public Use
  Company Number: GB-MERCK-0607GBR00126

PATIENT
  Age: 7 Year
  Sex: Male
  Weight: 23 kg

DRUGS (5)
  1. EMEND [Suspect]
     Indication: CYCLIC VOMITING SYNDROME
     Route: 048
  2. PROPRANOLOL HYDROCHLORIDE [Concomitant]
     Indication: PROPHYLAXIS
     Route: 065
     Dates: start: 20030101
  3. DEXAMETHASONE [Concomitant]
     Route: 065
  4. ONDANSETRON [Concomitant]
     Route: 065
  5. CHLORPROMAZINE [Concomitant]
     Route: 065

REACTIONS (5)
  - DRUG PRESCRIBING ERROR [None]
  - PALPITATIONS [None]
  - PRESCRIBED OVERDOSE [None]
  - SINUS BRADYCARDIA [None]
  - TACHYCARDIA [None]
